FAERS Safety Report 10364385 (Version 2)
Quarter: 2014Q3

REPORT INFORMATION
  Report Type: Spontaneous
  Country: US (occurrence: US)
  Receive Date: 20140806
  Receipt Date: 20140813
  Transmission Date: 20150326
  Serious: Yes (Other)
  Sender: FDA-Public Use
  Company Number: US-AMGEN-USASP2014057966

PATIENT
  Age: 55 Year
  Sex: Female
  Weight: 89.89 kg

DRUGS (7)
  1. SYNTHROID [Concomitant]
     Active Substance: LEVOTHYROXINE SODIUM
     Dosage: 137 MU, DAILY
     Route: 048
  2. FOLIC ACID. [Concomitant]
     Active Substance: FOLIC ACID
     Dosage: 1 MG, DAILY
  3. CALCIUM [Concomitant]
     Active Substance: CALCIUM
     Dosage: 1200 MG, UNK
     Route: 048
  4. ENBREL [Suspect]
     Active Substance: ETANERCEPT
     Indication: PSORIASIS
     Dosage: 50 MG, QWK
     Route: 058
     Dates: start: 20140714, end: 20140721
  5. ZYRTEC [Concomitant]
     Active Substance: CETIRIZINE HYDROCHLORIDE
     Dosage: 10 MG, UNK
  6. LIPITOR [Concomitant]
     Active Substance: ATORVASTATIN CALCIUM
     Dosage: 40 MG, DAILY
  7. METHOTREXATE [Concomitant]
     Active Substance: METHOTREXATE
     Dosage: 2.5 MG, 6 TABLETS WEEKLY
     Route: 048

REACTIONS (26)
  - Deafness [Unknown]
  - Arthralgia [Unknown]
  - Fatigue [Unknown]
  - Pyrexia [Unknown]
  - Injection site reaction [Recovered/Resolved]
  - Hypercholesterolaemia [Unknown]
  - Flushing [Unknown]
  - Eye pain [Recovered/Resolved]
  - Psoriasis [Unknown]
  - Hyperlipidaemia [Unknown]
  - Blood pressure increased [Unknown]
  - Myositis [Unknown]
  - Injection site warmth [Unknown]
  - Injection site erythema [Recovering/Resolving]
  - Myalgia [Unknown]
  - Injection site induration [Recovering/Resolving]
  - Anxiety [Unknown]
  - Cerumen impaction [Unknown]
  - Blood creatinine decreased [Unknown]
  - Osteoarthritis [Unknown]
  - Rhinitis allergic [Unknown]
  - Conjunctivitis [Unknown]
  - Headache [Recovered/Resolved]
  - Hypothyroidism [Unknown]
  - Diverticulum [Unknown]
  - Genital herpes [Unknown]

NARRATIVE: CASE EVENT DATE: 20140724
